FAERS Safety Report 21497365 (Version 1)
Quarter: 2022Q4

REPORT INFORMATION
  Report Type: Spontaneous
  Country: US (occurrence: None)
  Receive Date: 20221021
  Receipt Date: 20221021
  Transmission Date: 20230113
  Serious: No
  Sender: FDA-Public Use
  Company Number: None

PATIENT
  Age: 80 Year
  Sex: Male
  Weight: 141.97 kg

DRUGS (38)
  1. ABIRATERONE [Suspect]
     Active Substance: ABIRATERONE
     Indication: Prostate cancer
     Dosage: FREQUENCY : DAILY;?
     Route: 048
  2. PREDNISONE [Suspect]
     Active Substance: PREDNISONE
     Dosage: FREQUENCY : TWICE A DAY;?
     Route: 048
  3. ACCOLATE [Concomitant]
     Active Substance: ZAFIRLUKAST
  4. ACETAMINOPHEN [Concomitant]
     Active Substance: ACETAMINOPHEN
  5. ACTOS [Concomitant]
     Active Substance: PIOGLITAZONE HYDROCHLORIDE
  6. ALBUTEROL [Concomitant]
     Active Substance: ALBUTEROL
  7. AMLODIPINE AZLASTINE [Concomitant]
  8. BREO ELLIPTA [Concomitant]
     Active Substance: FLUTICASONE FUROATE\VILANTEROL TRIFENATATE
  9. CLOTRIMAZOLE [Concomitant]
     Active Substance: CLOTRIMAZOLE
  10. COD LIVER OIL [Concomitant]
     Active Substance: COD LIVER OIL
  11. COENZYME Q10 [Concomitant]
     Active Substance: DIETARY SUPPLEMENT\UBIDECARENONE
  12. DOCUSATE SODIUM [Concomitant]
     Active Substance: DOCUSATE SODIUM
  13. FINASTERIDE [Concomitant]
     Active Substance: FINASTERIDE
  14. FLUOROMETHOLONE [Concomitant]
     Active Substance: FLUOROMETHOLONE
  15. FOLIC ACID [Concomitant]
     Active Substance: FOLIC ACID
  16. GLYCERIN [Concomitant]
     Active Substance: GLYCERIN
  17. HYDROCHLOROTHIAZIDE [Concomitant]
     Active Substance: HYDROCHLOROTHIAZIDE
  18. ARGININE [Concomitant]
     Active Substance: ARGININE
  19. LASIX [Concomitant]
     Active Substance: FUROSEMIDE
  20. LIDOCAINE [Concomitant]
     Active Substance: LIDOCAINE
  21. LISINOPRIL [Concomitant]
     Active Substance: LISINOPRIL
  22. LOPERAMIDE [Concomitant]
     Active Substance: LOPERAMIDE
  23. MAGOX [Concomitant]
  24. MECLIZINE [Concomitant]
     Active Substance: MECLIZINE HYDROCHLORIDE
  25. METFORMIN [Concomitant]
     Active Substance: METFORMIN HYDROCHLORIDE
  26. METOLAZONE [Concomitant]
     Active Substance: METOLAZONE
  27. MINCONAZOLE [Concomitant]
  28. NYSTATIN [Concomitant]
     Active Substance: NYSTATIN
  29. POTASSIUM CHLORIDE [Concomitant]
     Active Substance: POTASSIUM CHLORIDE
  30. PREDNISONE [Concomitant]
     Active Substance: PREDNISONE
  31. QUESTRAN [Concomitant]
     Active Substance: CHOLESTYRAMINE
  32. SIMVASTATIN [Concomitant]
     Active Substance: SIMVASTATIN
  33. SYMBICORT [Concomitant]
     Active Substance: BUDESONIDE\FORMOTEROL FUMARATE DIHYDRATE
  34. SYSTANE (HYPROMELLOSE 2910 (4000 MPA.S)) [Concomitant]
     Active Substance: HYPROMELLOSE 2910 (4000 MPA.S)
  35. TERBINAFINE [Concomitant]
     Active Substance: TERBINAFINE
  36. VITAMIN C [Concomitant]
     Active Substance: ASCORBIC ACID
  37. VITAMIN D3 [Concomitant]
     Active Substance: CHOLECALCIFEROL
  38. ZINC OXIDE [Concomitant]
     Active Substance: ZINC OXIDE

REACTIONS (5)
  - Dehydration [None]
  - Joint swelling [None]
  - Renal disorder [None]
  - Hypotension [None]
  - Therapy interrupted [None]
